FAERS Safety Report 19707236 (Version 4)
Quarter: 2021Q3

REPORT INFORMATION
  Report Type: Spontaneous
  Country: BR (occurrence: BR)
  Receive Date: 20210817
  Receipt Date: 20210911
  Transmission Date: 20211014
  Serious: Yes (Other)
  Sender: FDA-Public Use
  Company Number: NVSC2021BR184549

PATIENT
  Sex: Male

DRUGS (1)
  1. RITALINA [Suspect]
     Active Substance: METHYLPHENIDATE HYDROCHLORIDE
     Indication: PRODUCT USED FOR UNKNOWN INDICATION
     Dosage: STARTED 13 YEARS AGO
     Route: 065

REACTIONS (12)
  - Bipolar disorder [Unknown]
  - Depression [Unknown]
  - Cardiac disorder [Unknown]
  - Drug tolerance [Unknown]
  - Intentional product misuse [Unknown]
  - Anxiety [Unknown]
  - Intentional overdose [Unknown]
  - Lethargy [Unknown]
  - Irritability [Unknown]
  - Drug dependence [Unknown]
  - Wrong technique in product usage process [Unknown]
  - Fatigue [Unknown]
